FAERS Safety Report 7597235 (Version 4)
Quarter: 2012Q4

REPORT INFORMATION
  Report Type: 
  Country: GB (occurrence: GB)
  Receive Date: 20100920
  Receipt Date: 20120918
  Transmission Date: 20130627
  Serious: Yes (Hospitalization, Other)
  Sender: FDA-Public Use
  Company Number: GB-PFIZER INC-2010113162

PATIENT
  Age: 35 Year
  Sex: Female
  Weight: 54 kg

DRUGS (46)
  1. SERTRALINE HCL [Suspect]
     Dosage: UNK
  2. SERTRALINE HCL [Suspect]
     Dosage: 100 mg, 2x/day
     Dates: start: 20100730
  3. UNSPECIFIED INGREDIENT [Suspect]
     Dosage: 350 ug, UNK
     Dates: start: 20091023
  4. UNSPECIFIED INGREDIENT [Suspect]
     Dosage: UNK
  5. ARIPIPRAZOLE [Suspect]
     Dosage: 30mg unit dose and 15 mg unit dose; UNK
  6. ARIPIPRAZOLE [Suspect]
     Dosage: 30 mg, UNK
     Dates: start: 20100730
  7. ARIPIPRAZOLE [Suspect]
     Dosage: 15 mg, UNK
     Dates: start: 20100702
  8. ARIPIPRAZOLE [Suspect]
     Dosage: 30 mg, UNK
     Dates: start: 20100205
  9. LANSOPRAZOLE [Suspect]
     Dosage: UNK
  10. LANSOPRAZOLE [Suspect]
     Dosage: 30 mg, UNK
     Dates: start: 20100730
  11. DIHYDROCODEINE [Suspect]
     Indication: BACK PAIN
     Dosage: UNK; 2x/day
  12. DIHYDROCODEINE [Suspect]
     Dosage: 30 mg, 1-2 tds for back pain
     Dates: start: 20090923
  13. PROPRANOLOL [Suspect]
     Dosage: UNK
  14. PROPRANOLOL [Suspect]
     Dosage: 10 mg, UNK
     Dates: start: 20100730
  15. LAMICTAL [Suspect]
     Indication: EPILEPSY
     Dosage: 400 mg, 2x/day
     Route: 048
     Dates: start: 2004
  16. LAMICTAL [Suspect]
     Dosage: 50 mg, 2x/day
     Dates: start: 20100618
  17. LAMICTAL [Suspect]
     Dosage: 200 mg, UNK
     Dates: start: 20100730
  18. LAMICTAL [Suspect]
     Dosage: 100 mg, 2x/day
     Dates: start: 20100730
  19. LAMICTAL [Suspect]
     Dosage: 25 mg, 2x/day
     Dates: start: 20100702
  20. AMOXICILLIN [Concomitant]
     Dosage: 500 mg, 3x/day
     Dates: start: 20091023
  21. AMOXICILLIN [Concomitant]
     Dosage: 500 mg, tds
     Dates: start: 20091130
  22. AMOXICILLIN [Concomitant]
     Dosage: 500 mg, tds
     Dates: start: 20100226
  23. AMOXICILLIN [Concomitant]
     Dosage: 500 mg, tds
     Dates: start: 20100326
  24. BETAMETHASONE [Concomitant]
     Dosage: 0.1 percent, 2x/day to each nostril
     Route: 045
     Dates: start: 20090722
  25. CHLORAMPHENICOL [Concomitant]
     Dosage: 0.5 percent, 4x/day
     Route: 047
     Dates: start: 20090923
  26. CHLORAMPHENICOL [Concomitant]
     Dosage: 1 DF, 4x/day
     Dates: start: 20090722
  27. CLOBAZAM [Concomitant]
     Dosage: 1 DF, 2x/day
     Dates: start: 20100702, end: 20100708
  28. CLOBAZAM [Concomitant]
     Dosage: 0.5 DF, 2x/day
     Dates: start: 20100709
  29. CLOBAZAM [Concomitant]
     Dosage: 0.5 DF, UNK
     Dates: start: 20100709
  30. AMOXICILLIN\CLAVULANATE POTASSIUM [Concomitant]
     Dosage: 500/125; three times daily dose
  31. AMOXICILLIN\CLAVULANATE POTASSIUM [Concomitant]
     Dosage: 500/125; tds
     Dates: start: 20100517
  32. DICLOFENAC SODIUM [Concomitant]
     Dosage: 50 mg, 3x/day
     Dates: start: 20090501
  33. DICLOFENAC SODIUM [Concomitant]
     Dosage: 75 mg, 2x/day
  34. FOLIC ACID [Concomitant]
     Dosage: 5 mg, UNK
     Dates: start: 20091130
  35. FOLIC ACID [Concomitant]
     Dosage: 5 mg, UNK
     Dates: start: 20091221
  36. LACTULOSE [Concomitant]
     Dosage: 3.35g/5ml; 5-10ml daily dose
  37. LACTULOSE [Concomitant]
     Dosage: 3.35g/5ml; 5-10ml daily dose
     Dates: start: 20090722
  38. LACTULOSE [Concomitant]
     Dosage: 3.35g/5ml; 5-10ml daily
     Dates: start: 20090506
  39. LIDOCAINE [Concomitant]
     Dosage: 5 percent (1 DF), as needed
     Dates: start: 20100604
  40. LIDOCAINE [Concomitant]
     Dosage: 5 percent medicated plaster, as needed (10 patches)
     Dates: start: 20100611
  41. MICONAZOLE [Concomitant]
     Dosage: 2 percent cream and 24mg/ml (20mg/gram) daily dose
     Dates: start: 20100604
  42. MICONAZOLE [Concomitant]
     Dosage: 24mg/ml (20mg/gram); daily
     Dates: start: 20100702
  43. MICONAZOLE [Concomitant]
     Dosage: 24 mg/ml, 1x/day
     Dates: start: 20100618
  44. OMEPRAZOLE [Concomitant]
     Dosage: 20mg; daily dose
     Dates: start: 20090501
  45. PROCHLORPERAZINE [Concomitant]
     Indication: NAUSEA
     Dosage: 5 mg, as needed for nausea
     Dates: start: 20091221
  46. PROCHLORPERAZINE [Concomitant]
     Dosage: 5 mg, as needed for nausea
     Dates: start: 20100122

REACTIONS (4)
  - Cholestasis of pregnancy [Recovered/Resolved]
  - Live birth [Unknown]
  - Premature labour [Unknown]
  - Convulsion [Not Recovered/Not Resolved]
